FAERS Safety Report 10011049 (Version 1)
Quarter: 2014Q1

REPORT INFORMATION
  Report Type: Spontaneous
  Country: US (occurrence: None)
  Receive Date: 20140304
  Receipt Date: 20140304
  Transmission Date: 20141002
  Serious: Yes (Other)
  Sender: FDA-Public Use
  Company Number: RB-8001-2007

PATIENT
  Sex: Female

DRUGS (3)
  1. SUBOXONE (RECKITT BENCKISER) [Suspect]
     Indication: DRUG DEPENDENCE
     Route: 060
     Dates: start: 20070911, end: 20070913
  2. CICYCLOMINE [Concomitant]
  3. CYMBALTA [Concomitant]

REACTIONS (3)
  - Rash [None]
  - Pruritus [None]
  - Feeling abnormal [None]
